FAERS Safety Report 7623194-3 (Version None)
Quarter: 2011Q3

REPORT INFORMATION
  Report Type: 
  Country: None (occurrence: None)
  Receive Date: 20110720
  Receipt Date: 20110712
  Transmission Date: 20111222
  Serious: Yes (Other)
  Sender: FDA-Public Use
  Company Number: PHHY2011GR61852

PATIENT
  Sex: Female

DRUGS (4)
  1. CERTICAN [Suspect]
     Indication: RENAL TRANSPLANT
     Dosage: 1.5 MG, DAILY
     Route: 048
     Dates: start: 20101216
  2. NEORAL [Concomitant]
     Indication: IMMUNOSUPPRESSION
     Dosage: 100 MG,
     Dates: start: 20100617
  3. MEDROL [Concomitant]
     Indication: IMMUNOSUPPRESSION
     Dosage: 8 MG, UNK
     Dates: start: 20100909
  4. CRESTOR [Concomitant]
     Indication: HYPERLIPIDAEMIA
     Dosage: 10 MG, UNK
     Dates: start: 20100720

REACTIONS (1)
  - MENSTRUAL DISORDER [None]
